FAERS Safety Report 7518933-6 (Version None)
Quarter: 2011Q2

REPORT INFORMATION
  Report Type: 
  Country: None (occurrence: None)
  Receive Date: 20110523
  Receipt Date: 20110510
  Transmission Date: 20111010
  Serious: Yes (Other)
  Sender: FDA-Public Use
  Company Number: 2011MA005860

PATIENT
  Age: 45 Year
  Sex: Female

DRUGS (6)
  1. FLUOROURACIL [Suspect]
     Indication: BREAST CANCER
     Dosage: 1200 MG
     Dates: start: 20100825, end: 20101208
  2. EPIRUBICIN HYDROCHLORIDE [Suspect]
     Indication: BREAST CANCER
     Dosage: 150 MG; PARN
     Route: 051
     Dates: start: 20100825, end: 20101208
  3. CYCLOPHOSPHAMIDE [Suspect]
     Indication: BREAST CANCER
     Dosage: 1200 MG
     Dates: start: 20100825, end: 20101208
  4. AMOXICILLIN [Concomitant]
  5. AMPICILLIN SODIUM/SULBACTAM SODIUM [Concomitant]
  6. TRASTUZUMAB (TRASTUZUMAB) [Suspect]
     Indication: BREAST CANCER FEMALE
     Dosage: PARN
     Route: 051
     Dates: start: 20110206, end: 20110331

REACTIONS (2)
  - EJECTION FRACTION DECREASED [None]
  - LEFT VENTRICULAR DYSFUNCTION [None]
